FAERS Safety Report 9302032 (Version 2)
Quarter: 2013Q4

REPORT INFORMATION
  Report Type: Spontaneous
  Country: US (occurrence: US)
  Receive Date: 20130521
  Receipt Date: 20131108
  Transmission Date: 20140711
  Serious: Yes (Death, Hospitalization, Other)
  Sender: FDA-Public Use
  Company Number: US-B.I. PHARMACEUTICALS,INC./RIDGEFIELD-2013-BI-14228BP

PATIENT
  Age: 77 Year
  Sex: Female
  Weight: 63.5 kg

DRUGS (31)
  1. PRADAXA [Suspect]
     Indication: ANTICOAGULANT THERAPY
     Dosage: 300 MG
     Dates: start: 20120118, end: 20120508
  2. PRADAXA [Suspect]
     Indication: ATRIAL FIBRILLATION
  3. MULTAQ [Concomitant]
     Dosage: 800 MG
  4. ALBUTEROL SULFATE [Concomitant]
     Dosage: 2 MG
  5. METOPROLOL TARTRATE [Concomitant]
     Dosage: 50 MG
  6. SINGULAIR [Concomitant]
     Dosage: 10 MG
  7. PREDNISONE [Concomitant]
     Dosage: 10 MG
  8. CARAFATE [Concomitant]
  9. THEOPHYLLINE CR [Concomitant]
     Dosage: 600 MG
  10. TRAZODONE HCL [Concomitant]
     Dosage: 50 MG
  11. FOSAMAX [Concomitant]
     Dosage: 10 MG
  12. OSCAL D-3 [Concomitant]
  13. FUROSEMIDE [Concomitant]
     Dosage: 40 MG
  14. KLOR-CON [Concomitant]
     Dosage: 40 MEQ
  15. LYRICA [Concomitant]
     Dosage: 300 MG
  16. SYNTHROID [Concomitant]
     Dosage: 100 MCG
  17. ALBUTEROL IPRATROPIUM [Concomitant]
  18. TEMAZEPAM [Concomitant]
     Dosage: 30 MG
  19. PULMICORT [Concomitant]
  20. MELOXICAM [Concomitant]
  21. OMEPRAZOLE [Concomitant]
     Dosage: 20 MG
  22. PROAIR HFA [Concomitant]
     Route: 048
  23. DICYCLOMINE HCL [Concomitant]
     Indication: ABDOMINAL PAIN
  24. NITROGLYCERIN [Concomitant]
     Indication: CHEST PAIN
     Route: 060
  25. HYDROCODONE W/ACETAMINOPHEN [Concomitant]
     Indication: BONE PAIN
  26. ROBAXIN [Concomitant]
  27. ASPIRIN EC [Concomitant]
     Dosage: 81 MG
  28. NAMENDA [Concomitant]
     Dosage: 20 MG
  29. SEROQUEL [Concomitant]
     Dosage: 25 MG
  30. ALPRAZOLAM [Concomitant]
     Indication: ANXIETY
  31. ZITHROMAX [Concomitant]

REACTIONS (6)
  - Shock haemorrhagic [Fatal]
  - Pericardial haemorrhage [Unknown]
  - Deep vein thrombosis [Unknown]
  - Pelvic haematoma [Unknown]
  - Abdominal wall haemorrhage [Unknown]
  - Disseminated intravascular coagulation [Unknown]
